FAERS Safety Report 20713834 (Version 1)
Quarter: 2022Q2

REPORT INFORMATION
  Report Type: Spontaneous
  Country: US (occurrence: US)
  Receive Date: 20220415
  Receipt Date: 20220415
  Transmission Date: 20220721
  Serious: No
  Sender: FDA-Public Use
  Company Number: US-NOVARTISTESTPH-NVSC2022US079542

PATIENT
  Age: 5 Year
  Sex: Male

DRUGS (4)
  1. GUANFACINE [Suspect]
     Active Substance: GUANFACINE
     Indication: Tourette^s disorder
     Dosage: UNK
     Route: 065
  2. CLONIDINE [Suspect]
     Active Substance: CLONIDINE
     Indication: Tourette^s disorder
     Dosage: UNK
     Route: 065
  3. TETRABENAZINE [Suspect]
     Active Substance: TETRABENAZINE
     Indication: Tourette^s disorder
     Dosage: UNK
     Route: 065
  4. DIVALPROEX SODIUM [Suspect]
     Active Substance: DIVALPROEX SODIUM
     Indication: Tourette^s disorder
     Dosage: UNK
     Route: 065

REACTIONS (3)
  - Product use in unapproved indication [Unknown]
  - Product use issue [Unknown]
  - Therapy non-responder [Unknown]
